FAERS Safety Report 7257172-3 (Version None)
Quarter: 2011Q1

REPORT INFORMATION
  Report Type: 
  Country: None (occurrence: None)
  Receive Date: 20110129
  Receipt Date: 20100818
  Transmission Date: 20110831
  Serious: No
  Sender: FDA-Public Use
  Company Number: US-ABBOTT-10P-163-0664750-00

PATIENT
  Age: 70 Year
  Sex: Female

DRUGS (8)
  1. METHOTREXATE [Concomitant]
     Indication: PSORIATIC ARTHROPATHY
  2. VYVANSE [Concomitant]
     Indication: DYSLEXIA
  3. CLONAZAPAM [Concomitant]
     Indication: PRODUCT USED FOR UNKNOWN INDICATION
  4. SYNTHROID [Concomitant]
     Indication: THYROID FUNCTION TEST ABNORMAL
  5. HUMIRA [Suspect]
     Indication: PSORIATIC ARTHROPATHY
     Dates: start: 20100501
  6. ACIPHEX [Concomitant]
     Indication: GASTROOESOPHAGEAL REFLUX DISEASE
  7. PRISTIQ [Concomitant]
     Indication: ANTIDEPRESSANT THERAPY
  8. VICODIN [Concomitant]
     Indication: PAIN

REACTIONS (4)
  - IRRITABILITY [None]
  - EMOTIONAL DISTRESS [None]
  - FOOD CRAVING [None]
  - HEARING IMPAIRED [None]
